FAERS Safety Report 9904334 (Version 3)
Quarter: 2015Q3

REPORT INFORMATION
  Report Type: Spontaneous
  Country: US (occurrence: US)
  Receive Date: 20140218
  Receipt Date: 20150814
  Transmission Date: 20151125
  Serious: No
  Sender: FDA-Public Use
  Company Number: US-PFIZER INC-2014043701

PATIENT
  Sex: Female

DRUGS (2)
  1. CORTEF [Suspect]
     Active Substance: HYDROCORTISONE
     Dosage: 10 MG TABLETS
  2. CORTEF [Suspect]
     Active Substance: HYDROCORTISONE
     Dosage: TWO 5 MG TABLETS

REACTIONS (1)
  - Drug ineffective [Unknown]
